FAERS Safety Report 17198929 (Version 6)
Quarter: 2020Q1

REPORT INFORMATION
  Report Type: Report from Study
  Country: CA (occurrence: CA)
  Receive Date: 20191225
  Receipt Date: 20200226
  Transmission Date: 20200409
  Serious: Yes (Other)
  Sender: FDA-Public Use
  Company Number: NVSC2019CA077102

PATIENT
  Age: 72 Year
  Sex: Male

DRUGS (27)
  1. APO-METOPROLOL [Concomitant]
     Active Substance: METOPROLOL
     Indication: HYPERTENSION
     Dosage: 5 MG
     Route: 065
  2. MELOXICAM. [Concomitant]
     Active Substance: MELOXICAM
     Indication: PAIN IN EXTREMITY
     Dosage: 7.5 MG,(1 OR 2 TABLETS)QD
     Route: 065
  3. MELOXICAM. [Concomitant]
     Active Substance: MELOXICAM
     Indication: SWELLING
  4. STATEX [Concomitant]
     Indication: BREAKTHROUGH PAIN
     Dosage: 5 MG (1 TABLET) EVERY 4 HOURS
     Route: 065
  5. RATIO-MELOXICAM [Concomitant]
     Indication: PERIPHERAL SWELLING
  6. FUROSEMIDE. [Concomitant]
     Active Substance: FUROSEMIDE
     Indication: SWELLING
     Dosage: 20 MG, BID
     Route: 065
  7. SALBUTAMOL [Concomitant]
     Active Substance: ALBUTEROL
     Indication: DYSPNOEA
     Dosage: 1-2PUFFS
     Route: 065
  8. CEDOCARD-SR [Concomitant]
     Indication: ANGINA PECTORIS
     Dosage: 2 DF, QID
     Route: 065
  9. PREDNISONE. [Concomitant]
     Active Substance: PREDNISONE
     Indication: PRODUCT USED FOR UNKNOWN INDICATION
     Route: 065
  10. VOLTAREN [Concomitant]
     Active Substance: DICLOFENAC SODIUM
     Indication: PRODUCT USED FOR UNKNOWN INDICATION
     Route: 065
  11. HIDROCORTIZON [Concomitant]
     Indication: RASH
  12. DOVOBET [Concomitant]
     Active Substance: BETAMETHASONE\CALCIPOTRIENE
     Indication: PSORIASIS
     Route: 065
  13. APO-DIAZEPAM [Concomitant]
     Active Substance: DIAZEPAM
     Indication: MUSCLE SPASMS
     Dosage: 2 MG
     Route: 065
  14. APO-FUROSEMIDE [Concomitant]
     Active Substance: FUROSEMIDE
     Indication: JOINT SWELLING
     Dosage: UNK
     Route: 065
  15. ZADITOR [Concomitant]
     Active Substance: KETOTIFEN FUMARATE
     Indication: BLEPHARITIS
     Dosage: 0.25 %, UNKNOWN (TAKES EVERY 2 YEARS ONLY)
     Route: 065
  16. KETOTIFEN FUMARATE. [Concomitant]
     Active Substance: KETOTIFEN FUMARATE
     Indication: BLEPHARITIS
     Dosage: UNK (AT LEAST EVERY 2 YEARS)
     Route: 065
  17. ACETAMINOPHEN. [Concomitant]
     Active Substance: ACETAMINOPHEN
     Indication: PAIN
     Dosage: 500 MG, TID
     Route: 065
  18. RATIO-MELOXICAM [Concomitant]
     Indication: PAIN IN EXTREMITY
     Route: 065
  19. SALBUTAMOL [Concomitant]
     Active Substance: ALBUTEROL
     Indication: COUGH
  20. SALBUTAMOL [Concomitant]
     Active Substance: ALBUTEROL
     Indication: WHEEZING
  21. COSENTYX [Suspect]
     Active Substance: SECUKINUMAB
     Indication: PSORIATIC ARTHROPATHY
     Dosage: 150 MG, QW (SENSOREADY PEN)
     Route: 058
     Dates: start: 20191207
  22. IBUPROFEN. [Concomitant]
     Active Substance: IBUPROFEN
     Indication: PRODUCT USED FOR UNKNOWN INDICATION
     Dosage: UNK
     Route: 065
  23. MELSON [Concomitant]
     Indication: PAIN
     Dosage: UNK
     Route: 065
  24. APO-METOPROLOL [Concomitant]
     Active Substance: METOPROLOL
     Indication: HEART RATE DECREASED
  25. GEN-SIMVASTATIN [Concomitant]
     Indication: CARDIAC DISORDER
     Dosage: 20 MG
     Route: 065
  26. HIDROCORTIZON [Concomitant]
     Indication: SKIN EXFOLIATION
     Dosage: 1 %
     Route: 065
  27. RANITIDINE. [Concomitant]
     Active Substance: RANITIDINE
     Indication: PRODUCT USED FOR UNKNOWN INDICATION
     Dosage: UNK
     Route: 065

REACTIONS (7)
  - Psoriatic arthropathy [Unknown]
  - Exostosis [Unknown]
  - Oropharyngeal pain [Unknown]
  - Osteoarthritis [Unknown]
  - Fall [Unknown]
  - Ankle fracture [Unknown]
  - Enthesopathy [Unknown]

NARRATIVE: CASE EVENT DATE: 202001
